FAERS Safety Report 12798016 (Version 1)
Quarter: 2016Q3

REPORT INFORMATION
  Report Type: Report from Study
  Country: AU (occurrence: AU)
  Receive Date: 20160930
  Receipt Date: 20160930
  Transmission Date: 20161109
  Serious: Yes (Death, Other)
  Sender: FDA-Public Use
  Company Number: AU-BRISTOL-MYERS SQUIBB COMPANY-19855022

PATIENT
  Sex: Male
  Weight: 119 kg

DRUGS (4)
  1. DIABEX [Concomitant]
     Active Substance: METFORMIN HYDROCHLORIDE
  2. NORVASC [Concomitant]
     Active Substance: AMLODIPINE BESYLATE
  3. ASPIRIN. [Concomitant]
     Active Substance: ASPIRIN
  4. IPILIMUMAB [Suspect]
     Active Substance: IPILIMUMAB
     Indication: MALIGNANT MELANOMA
     Dosage: LAST DOSE ON 16SEP13:357.5 MG
     Route: 042
     Dates: start: 20130827, end: 20130916

REACTIONS (2)
  - Malignant neoplasm progression [Fatal]
  - Sepsis [Fatal]
